FAERS Safety Report 8411769 (Version 7)
Quarter: 2012Q4

REPORT INFORMATION
  Report Type: 
  Country: US (occurrence: US)
  Receive Date: 20120217
  Receipt Date: 20121002
  Transmission Date: 20130627
  Serious: Yes (Hospitalization, Other)
  Sender: FDA-Public Use
  Company Number: US-009507513-1202USA02449

PATIENT

DRUGS (14)
  1. FOSAMAX [Suspect]
     Indication: OSTEOPOROSIS
     Dosage: 10 mg, qd
     Route: 048
     Dates: start: 19991214, end: 200111
  2. FOSAMAX [Suspect]
     Indication: OSTEOPENIA
     Dosage: 70 mg, QW
     Route: 048
     Dates: start: 200112, end: 20051016
  3. FOSAMAX [Suspect]
     Dosage: 70 mg, QW
     Route: 048
     Dates: start: 20071019, end: 200802
  4. FOSAMAX PLUS D [Suspect]
     Dosage: 70 mg, QW
     Route: 048
     Dates: start: 20051119, end: 20060830
  5. FOSAMAX PLUS D [Suspect]
     Indication: OSTEOPOROSIS
     Dosage: 70mg/2800
     Route: 048
     Dates: start: 20070520, end: 20071014
  6. FOSAMAX PLUS D [Suspect]
     Indication: OSTEOPENIA
  7. FOSAMAX PLUS D [Suspect]
     Dosage: 70mg/2800
     Route: 048
     Dates: start: 20080902, end: 20101115
  8. MK-9278 [Concomitant]
     Dosage: UNK UNK, qd
     Dates: start: 1985
  9. CALCIUM (UNSPECIFIED) [Concomitant]
     Dosage: 500-1500
     Dates: start: 1985
  10. VITAMIN D (UNSPECIFIED) [Concomitant]
     Dates: start: 1996, end: 2011
  11. VITAMIN E [Concomitant]
     Dosage: 400 IU, UNK
     Dates: start: 1998, end: 1999
  12. SYNTHROID [Concomitant]
     Dosage: 0.1 mg, qd
     Dates: start: 199504
  13. SYNTHROID [Concomitant]
     Indication: HYPOTHYROIDISM
  14. HORMONES (UNSPECIFIED) [Concomitant]
     Dates: start: 199802, end: 201011

REACTIONS (59)
  - Tibia fracture [Unknown]
  - Fall [Unknown]
  - Contusion [Unknown]
  - Atrial fibrillation [Recovered/Resolved]
  - Open reduction of fracture [Recovered/Resolved]
  - Femur fracture [Recovered/Resolved]
  - Low turnover osteopathy [Unknown]
  - Tooth disorder [Unknown]
  - Vitamin D deficiency [Unknown]
  - Adverse event [Unknown]
  - Chronic sinusitis [Not Recovered/Not Resolved]
  - Hyperparathyroidism [Unknown]
  - Bladder irritation [Unknown]
  - Hydrometra [Unknown]
  - Migraine [Unknown]
  - Limb injury [Unknown]
  - Vitiligo [Unknown]
  - Melanocytic naevus [Unknown]
  - Ligament sprain [Unknown]
  - Keratosis pilaris [Unknown]
  - Acute stress disorder [Unknown]
  - Iron deficiency anaemia [Unknown]
  - Polyp [Unknown]
  - Traumatic haematoma [Unknown]
  - Hyperthyroidism [Unknown]
  - Fractured sacrum [Unknown]
  - Accident at work [Unknown]
  - Atrophic vulvovaginitis [Unknown]
  - Hypercholesterolaemia [Unknown]
  - Chronic fatigue syndrome [Not Recovered/Not Resolved]
  - Urinary tract infection [Unknown]
  - Ovarian cyst [Unknown]
  - Uterine enlargement [Unknown]
  - Menstrual disorder [Unknown]
  - Endometrial hyperplasia [Unknown]
  - Cardiac disorder [Unknown]
  - Acute sinusitis [Unknown]
  - Cough [Unknown]
  - Pulmonary congestion [Unknown]
  - Venous insufficiency [Unknown]
  - Hypercalcaemia [Unknown]
  - Pulmonary eosinophilia [Unknown]
  - Osteoarthritis [Unknown]
  - Corneal erosion [Unknown]
  - Haematuria [Unknown]
  - Pneumonia [Unknown]
  - Family stress [Unknown]
  - Excoriation [Unknown]
  - Gastritis [Unknown]
  - Arthralgia [Unknown]
  - Malaise [Unknown]
  - Drug hypersensitivity [Unknown]
  - Oesophagitis [Unknown]
  - Vertigo [Unknown]
  - Back pain [Unknown]
  - Pain in extremity [Unknown]
  - Abdominal pain [Unknown]
  - Nausea [Recovering/Resolving]
  - Muscle spasms [Unknown]
